FAERS Safety Report 17046648 (Version 1)
Quarter: 2019Q4

REPORT INFORMATION
  Report Type: Spontaneous
  Country: DE (occurrence: DE)
  Receive Date: 20191119
  Receipt Date: 20191119
  Transmission Date: 20200122
  Serious: Yes (Other)
  Sender: FDA-Public Use
  Company Number: DE-AUROBINDO-AUR-APL-2019-073285

PATIENT
  Age: 64 Year
  Sex: Male

DRUGS (4)
  1. LEVETIRACETAM. [Suspect]
     Active Substance: LEVETIRACETAM
     Indication: EPILEPSY
     Dosage: 500 MILLIGRAM, TWO TIMES A DAY, IN THE MORNING AND EVENING
     Route: 065
  2. TIMONIL 400 RETARD [Interacting]
     Active Substance: CARBAMAZEPINE
     Indication: EPILEPSY
     Dosage: 500 MILLIGRAM, TWO TIMES A DAY, IN THE MORNING AND EVENING
     Route: 065
  3. TIMONIL [Interacting]
     Active Substance: CARBAMAZEPINE
     Indication: EPILEPSY
     Dosage: UNK
     Route: 065
  4. TIMONIL 200 RETARD [Interacting]
     Active Substance: CARBAMAZEPINE
     Indication: EPILEPSY
     Dosage: 500 MILLIGRAM, TWO TIMES A DAY, IN THE MORNING AND EVENING
     Route: 065

REACTIONS (5)
  - Daydreaming [Unknown]
  - Gait disturbance [Unknown]
  - Somnolence [Unknown]
  - Toxicity to various agents [Unknown]
  - Drug interaction [Unknown]
